FAERS Safety Report 9682992 (Version 1)
Quarter: 2013Q4

REPORT INFORMATION
  Report Type: Spontaneous
  Country: US (occurrence: US)
  Receive Date: 20131112
  Receipt Date: 20131112
  Transmission Date: 20140711
  Serious: No
  Sender: FDA-Public Use
  Company Number: US-PFIZER INC-2013318287

PATIENT
  Sex: Female

DRUGS (2)
  1. AMLODIPINE BESILATE [Suspect]
     Dosage: 5 MG, 2X/DAY
  2. AMLODIPINE BESILATE [Suspect]
     Dosage: 10 MG, UNK

REACTIONS (2)
  - Abdominal pain upper [Unknown]
  - Feeling abnormal [Unknown]
